FAERS Safety Report 5844134-3 (Version None)
Quarter: 2008Q3

REPORT INFORMATION
  Report Type: 
  Country: None (occurrence: None)
  Receive Date: 20080813
  Receipt Date: 20080808
  Transmission Date: 20090109
  Serious: Yes (Hospitalization)
  Sender: FDA-Public Use
  Company Number: DE-WYE-G01856008

PATIENT
  Sex: Female

DRUGS (3)
  1. TREVILOR RETARD [Suspect]
     Dosage: OVERDOSE AMOUNT UNKNOWN
     Route: 048
     Dates: start: 20080713, end: 20080713
  2. ZELDOX [Suspect]
     Dosage: 40 TABLETS (OVERDOSE AMOUNT 3200 MG)
     Route: 048
     Dates: start: 20080713, end: 20080713
  3. MELPERONE [Suspect]
     Dosage: 50 TABLETS (OVERDOSE AMOUNT 1250 MG)
     Route: 048
     Dates: start: 20080713, end: 20080713

REACTIONS (9)
  - ACUTE RESPIRATORY DISTRESS SYNDROME [None]
  - CONVULSION [None]
  - INTENTIONAL OVERDOSE [None]
  - MYDRIASIS [None]
  - PULMONARY OEDEMA [None]
  - RESPIRATORY DEPRESSION [None]
  - SOMNOLENCE [None]
  - SUICIDE ATTEMPT [None]
  - TACHYCARDIA [None]
